FAERS Safety Report 14927832 (Version 3)
Quarter: 2018Q4

REPORT INFORMATION
  Report Type: Spontaneous
  Country: US (occurrence: US)
  Receive Date: 20180523
  Receipt Date: 20181207
  Transmission Date: 20190204
  Serious: Yes (Hospitalization, Other)
  Sender: FDA-Public Use
  Company Number: US-ASTRAZENECA-2018SE66622

PATIENT
  Age: 20516 Day
  Sex: Female
  Weight: 127 kg

DRUGS (74)
  1. NEXIUM [Suspect]
     Active Substance: ESOMEPRAZOLE MAGNESIUM
     Indication: GASTROOESOPHAGEAL REFLUX DISEASE
     Route: 048
     Dates: start: 20070102
  2. NEXIUM 24HR [Suspect]
     Active Substance: ESOMEPRAZOLE MAGNESIUM
     Route: 048
     Dates: start: 2007, end: 2016
  3. PROTONIX [Suspect]
     Active Substance: PANTOPRAZOLE SODIUM
     Indication: DYSPEPSIA
     Dosage: PANTOPRAZOLE
     Route: 065
     Dates: start: 20160913, end: 20161221
  4. CARVEDILOL. [Concomitant]
     Active Substance: CARVEDILOL
  5. METOLAZONE. [Concomitant]
     Active Substance: METOLAZONE
  6. TETRACYCLINE [Concomitant]
     Active Substance: TETRACYCLINE
  7. PRILOSEC [Suspect]
     Active Substance: OMEPRAZOLE MAGNESIUM
     Route: 048
     Dates: start: 2007, end: 2016
  8. PROTONIX [Suspect]
     Active Substance: PANTOPRAZOLE SODIUM
     Indication: DYSPEPSIA
     Dosage: GENERIC
     Route: 065
     Dates: start: 201406, end: 201411
  9. ISOSORBIDE. [Concomitant]
     Active Substance: ISOSORBIDE
  10. AMLODIPINE [Concomitant]
     Active Substance: AMLODIPINE BESYLATE
  11. METFORMIN [Concomitant]
     Active Substance: METFORMIN HYDROCHLORIDE
  12. HYDROMORPHONE [Concomitant]
     Active Substance: HYDROMORPHONE
  13. PERCOCET [Concomitant]
     Active Substance: ACETAMINOPHEN\OXYCODONE HYDROCHLORIDE
  14. DEMADEX [Concomitant]
     Active Substance: TORSEMIDE
  15. LOSARTAN. [Concomitant]
     Active Substance: LOSARTAN
  16. RIFAMPIN. [Concomitant]
     Active Substance: RIFAMPIN
  17. SENSIPAR [Concomitant]
     Active Substance: CINACALCET HYDROCHLORIDE
  18. NEXIUM [Suspect]
     Active Substance: ESOMEPRAZOLE MAGNESIUM
     Indication: GASTROOESOPHAGEAL REFLUX DISEASE
     Route: 048
     Dates: start: 2007, end: 2016
  19. BUPROPION. [Concomitant]
     Active Substance: BUPROPION
  20. BYETTA [Concomitant]
     Active Substance: EXENATIDE
  21. LANTUS [Concomitant]
     Active Substance: INSULIN GLARGINE
  22. METOLAZONE. [Concomitant]
     Active Substance: METOLAZONE
  23. ONDANSETRON [Concomitant]
     Active Substance: ONDANSETRON
  24. CEFEPIME [Concomitant]
     Active Substance: CEFEPIME HYDROCHLORIDE
  25. NEXIUM [Suspect]
     Active Substance: ESOMEPRAZOLE MAGNESIUM
     Indication: DYSPEPSIA
     Route: 048
     Dates: start: 200701, end: 201004
  26. NEXIUM [Suspect]
     Active Substance: ESOMEPRAZOLE MAGNESIUM
     Indication: GASTROOESOPHAGEAL REFLUX DISEASE
     Route: 048
     Dates: start: 201006, end: 201506
  27. NEXIUM [Suspect]
     Active Substance: ESOMEPRAZOLE MAGNESIUM
     Indication: GASTROOESOPHAGEAL REFLUX DISEASE
     Route: 048
     Dates: start: 201511, end: 201609
  28. PREVACID [Suspect]
     Active Substance: LANSOPRAZOLE
     Route: 065
     Dates: start: 2007, end: 2016
  29. LEVOTHYROXINE. [Concomitant]
     Active Substance: LEVOTHYROXINE
  30. CIPRO [Concomitant]
     Active Substance: CIPROFLOXACIN HYDROCHLORIDE
  31. CEFUROXIME. [Concomitant]
     Active Substance: CEFUROXIME
  32. NEXIUM [Suspect]
     Active Substance: ESOMEPRAZOLE MAGNESIUM
     Indication: DYSPEPSIA
     Route: 048
     Dates: start: 2007, end: 2016
  33. NEXIUM [Suspect]
     Active Substance: ESOMEPRAZOLE MAGNESIUM
     Indication: DYSPEPSIA
     Route: 048
     Dates: start: 2007
  34. NEXIUM [Suspect]
     Active Substance: ESOMEPRAZOLE MAGNESIUM
     Indication: DYSPEPSIA
     Route: 048
     Dates: start: 20070102
  35. BENADRYL [Concomitant]
     Active Substance: DIPHENHYDRAMINE HYDROCHLORIDE
  36. PROMETHAZINE [Concomitant]
     Active Substance: PROMETHAZINE\PROMETHAZINE HYDROCHLORIDE
  37. ALLOPURINOL. [Concomitant]
     Active Substance: ALLOPURINOL
  38. INDOMETHACIN. [Concomitant]
     Active Substance: INDOMETHACIN
  39. VICTOZA [Concomitant]
     Active Substance: LIRAGLUTIDE
  40. SYNTHROID [Concomitant]
     Active Substance: LEVOTHYROXINE SODIUM
  41. NEXIUM [Suspect]
     Active Substance: ESOMEPRAZOLE MAGNESIUM
     Indication: DYSPEPSIA
     Route: 048
     Dates: start: 201006, end: 201506
  42. NEXIUM [Suspect]
     Active Substance: ESOMEPRAZOLE MAGNESIUM
     Indication: DYSPEPSIA
     Route: 048
     Dates: start: 201511, end: 201609
  43. PRILOSEC OTC [Suspect]
     Active Substance: OMEPRAZOLE MAGNESIUM
     Route: 048
     Dates: start: 2007, end: 2016
  44. PROTONIX [Suspect]
     Active Substance: PANTOPRAZOLE SODIUM
     Indication: DYSPEPSIA
     Route: 065
     Dates: start: 2007, end: 2016
  45. TUMS [Concomitant]
     Active Substance: CALCIUM CARBONATE
  46. COMBIVENT [Concomitant]
     Active Substance: ALBUTEROL SULFATE\IPRATROPIUM BROMIDE
  47. METOCLOPRAMIDE. [Concomitant]
     Active Substance: METOCLOPRAMIDE
  48. COLCHICINE. [Concomitant]
     Active Substance: COLCHICINE
  49. MEDROL [Concomitant]
     Active Substance: METHYLPREDNISOLONE
  50. ADVIL [Concomitant]
     Active Substance: IBUPROFEN
  51. XANAX [Concomitant]
     Active Substance: ALPRAZOLAM
  52. DULCOLAX NOS [Concomitant]
     Active Substance: BISACODYL OR DOCUSATE SODIUM
  53. NEXIUM [Suspect]
     Active Substance: ESOMEPRAZOLE MAGNESIUM
     Indication: GASTROOESOPHAGEAL REFLUX DISEASE
     Route: 048
     Dates: start: 200701, end: 201004
  54. NEXIUM [Suspect]
     Active Substance: ESOMEPRAZOLE MAGNESIUM
     Indication: DYSPEPSIA
     Route: 048
     Dates: start: 201507, end: 201510
  55. PRILOSEC [Suspect]
     Active Substance: OMEPRAZOLE MAGNESIUM
     Route: 048
     Dates: start: 20130525
  56. PROTONIX [Suspect]
     Active Substance: PANTOPRAZOLE SODIUM
     Indication: DYSPEPSIA
     Route: 065
     Dates: start: 2007
  57. GABAPENTIN. [Concomitant]
     Active Substance: GABAPENTIN
  58. ASPIRIN. [Concomitant]
     Active Substance: ASPIRIN
  59. ATORVASTATIN [Concomitant]
     Active Substance: ATORVASTATIN
  60. HYDRALAZINE [Concomitant]
     Active Substance: HYDRALAZINE HYDROCHLORIDE
  61. VANCOMYCIN [Concomitant]
     Active Substance: VANCOMYCIN
  62. ENOXAPARIN [Concomitant]
     Active Substance: ENOXAPARIN
  63. LORTAB [Concomitant]
     Active Substance: ACETAMINOPHEN\HYDROCODONE BITARTRATE
  64. ELAVIL [Concomitant]
     Active Substance: AMITRIPTYLINE HYDROCHLORIDE
  65. NEXIUM [Suspect]
     Active Substance: ESOMEPRAZOLE MAGNESIUM
     Indication: GASTROOESOPHAGEAL REFLUX DISEASE
     Route: 048
     Dates: start: 201507, end: 201510
  66. NEXIUM [Suspect]
     Active Substance: ESOMEPRAZOLE MAGNESIUM
     Indication: GASTROOESOPHAGEAL REFLUX DISEASE
     Route: 048
     Dates: start: 2007
  67. CLONIDINE. [Concomitant]
     Active Substance: CLONIDINE
  68. TYLENOL [Concomitant]
     Active Substance: ACETAMINOPHEN
     Indication: PAIN
  69. NITROGLYCERINE [Concomitant]
     Active Substance: NITROGLYCERIN
  70. JANUVIA [Concomitant]
     Active Substance: SITAGLIPTIN PHOSPHATE
  71. DEXTROSE. [Concomitant]
     Active Substance: DEXTROSE
  72. MAALOX ANTACID [Concomitant]
     Active Substance: ALUMINUM HYDROXIDE\DIMETHICONE\MAGNESIUM HYDROXIDE
  73. COLACE [Concomitant]
     Active Substance: DOCUSATE SODIUM
  74. GENTAMYCIN [Concomitant]
     Active Substance: GENTAMICIN

REACTIONS (5)
  - Chronic kidney disease [Not Recovered/Not Resolved]
  - Acute kidney injury [Not Recovered/Not Resolved]
  - End stage renal disease [Unknown]
  - Renal failure [Unknown]
  - Renal disorder [Unknown]

NARRATIVE: CASE EVENT DATE: 20130526
